FAERS Safety Report 7208299-3 (Version None)
Quarter: 2011Q1

REPORT INFORMATION
  Report Type: 
  Country: None (occurrence: None)
  Receive Date: 20110104
  Receipt Date: 20101228
  Transmission Date: 20110831
  Serious: Yes (Other)
  Sender: FDA-Public Use
  Company Number: US-TEVA-261501USA

PATIENT
  Sex: Female
  Weight: 62.652 kg

DRUGS (1)
  1. ALBUTEROL SULFATE AUTOHALER [Suspect]
     Route: 058

REACTIONS (2)
  - ASTHMA [None]
  - DRUG INEFFECTIVE [None]
